FAERS Safety Report 14616065 (Version 1)
Quarter: 2018Q1

REPORT INFORMATION
  Report Type: Report from Study
  Country: US (occurrence: US)
  Receive Date: 20180309
  Receipt Date: 20180309
  Transmission Date: 20180509
  Serious: Yes (Hospitalization)
  Sender: FDA-Public Use
  Company Number: US-TAIHO ONCOLOGY INC-EU-2018-00342

PATIENT
  Age: 69 Year
  Sex: Female
  Weight: 59.02 kg

DRUGS (1)
  1. LONSURF [Suspect]
     Active Substance: TIPIRACIL HYDROCHLORIDE\TRIFLURIDINE
     Indication: COLON CANCER METASTATIC
     Dosage: CYCLE 1 - DOSAGE AND FREQUENCY UNKNOWN
     Route: 048
     Dates: start: 20180212, end: 20180215

REACTIONS (8)
  - Cytopenia [Unknown]
  - Weight decreased [Unknown]
  - Pneumonia [Unknown]
  - Loss of personal independence in daily activities [Unknown]
  - Asthenia [Unknown]
  - Disease progression [Unknown]
  - Dyspnoea [Unknown]
  - Decreased appetite [Unknown]

NARRATIVE: CASE EVENT DATE: 2018
